FAERS Safety Report 6396327-7 (Version None)
Quarter: 2009Q4

REPORT INFORMATION
  Report Type: 
  Country: None (occurrence: None)
  Receive Date: 20091012
  Receipt Date: 20090930
  Transmission Date: 20100525
  Serious: Yes (Hospitalization)
  Sender: FDA-Public Use
  Company Number: DK-RANBAXY-2009RR-27964

PATIENT
  Sex: Male

DRUGS (4)
  1. SIMVASTATIN [Suspect]
     Indication: HYPERCHOLESTEROLAEMIA
     Dosage: 40 MG, QD
     Route: 048
     Dates: start: 20080101, end: 20090813
  2. MAREVAN [Suspect]
     Indication: DEEP VEIN THROMBOSIS
     Dosage: 2.5 MG, BID
     Route: 048
     Dates: start: 20090810, end: 20090813
  3. VEPICOMBIN [Suspect]
     Indication: PNEUMONIA
     Dosage: 1 IU, QD
     Route: 048
     Dates: start: 20090810
  4. SELO-ZOK [Concomitant]
     Dosage: 50 MG, QD
     Route: 048
     Dates: start: 20070101

REACTIONS (2)
  - DRUG INTERACTION [None]
  - INTERNATIONAL NORMALISED RATIO INCREASED [None]
